FAERS Safety Report 5639072-5 (Version None)
Quarter: 2008Q1

REPORT INFORMATION
  Report Type: 
  Country: None (occurrence: None)
  Receive Date: 20080222
  Receipt Date: 20080215
  Transmission Date: 20080703
  Serious: Yes (Life-Threatening, Other)
  Sender: FDA-Public Use
  Company Number: MEDI-0006520

PATIENT
  Age: 12 Month
  Sex: Female

DRUGS (1)
  1. SYNAGIS [Suspect]
     Indication: ANTIVIRAL PROPHYLAXIS

REACTIONS (1)
  - OXYGEN SATURATION DECREASED [None]
